FAERS Safety Report 8654249 (Version 3)
Quarter: 2012Q4

REPORT INFORMATION
  Report Type: Report from Study
  Country: US (occurrence: US)
  Receive Date: 20120709
  Receipt Date: 20120911
  Transmission Date: 20130627
  Serious: Yes (Hospitalization)
  Sender: FDA-Public Use
  Company Number: US-JNJFOC-20120700826

PATIENT
  Age: 12 Year
  Sex: Male
  Weight: 45.4 kg

DRUGS (12)
  1. REMICADE [Suspect]
     Indication: INFLAMMATORY BOWEL DISEASE
     Route: 042
     Dates: start: 20110106
  2. 5-ASA [Suspect]
     Indication: INFLAMMATORY BOWEL DISEASE
     Route: 048
  3. OXYCODONE [Concomitant]
  4. MORPHINE [Concomitant]
  5. TYLENOL [Concomitant]
  6. FERROUS SULFATE [Concomitant]
  7. MIRALAX [Concomitant]
  8. ANTIBIOTICS FOR IBD [Concomitant]
     Indication: INFLAMMATORY BOWEL DISEASE
  9. DOCUSATE [Concomitant]
  10. PROBIOTICS [Concomitant]
  11. OMEPRAZOLE [Concomitant]
  12. BALNEOL [Concomitant]

REACTIONS (1)
  - Anal abscess [Recovered/Resolved]
